FAERS Safety Report 14416351 (Version 1)
Quarter: 2018Q1

REPORT INFORMATION
  Report Type: Spontaneous
  Country: FR (occurrence: FR)
  Receive Date: 20180122
  Receipt Date: 20180122
  Transmission Date: 20180509
  Serious: Yes (Disabling)
  Sender: FDA-Public Use
  Company Number: FR-ORION CORPORATION ORION PHARMA-TREX2018-0166

PATIENT
  Age: 52 Year
  Sex: Female
  Weight: 46 kg

DRUGS (1)
  1. IMETH [Suspect]
     Active Substance: METHOTREXATE SODIUM
     Indication: RHEUMATOID ARTHRITIS
     Dosage: STRENGTH: 10 MG
     Route: 048
     Dates: start: 2007, end: 201710

REACTIONS (2)
  - Parosmia [Recovered/Resolved]
  - Hyposmia [Recovered/Resolved]

NARRATIVE: CASE EVENT DATE: 201703
